FAERS Safety Report 24548758 (Version 1)
Quarter: 2024Q4

REPORT INFORMATION
  Report Type: Report from Study
  Country: ES (occurrence: ES)
  Receive Date: 20241025
  Receipt Date: 20241025
  Transmission Date: 20250115
  Serious: Yes (Other)
  Sender: ROCHE
  Company Number: None

PATIENT
  Age: 27 Year
  Sex: Female

DRUGS (7)
  1. MYCOPHENOLATE MOFETIL [Suspect]
     Active Substance: MYCOPHENOLATE MOFETIL
     Indication: Prophylaxis against transplant rejection
     Route: 065
  2. VALGANCICLOVIR [Suspect]
     Active Substance: VALGANCICLOVIR
     Indication: Cytomegalovirus infection
     Route: 048
  3. VALGANCICLOVIR [Suspect]
     Active Substance: VALGANCICLOVIR
     Route: 048
  4. VALGANCICLOVIR [Suspect]
     Active Substance: VALGANCICLOVIR
     Route: 048
  5. GANCICLOVIR [Suspect]
     Active Substance: GANCICLOVIR
     Indication: Cytomegalovirus infection
     Route: 065
  6. TACROLIMUS [Suspect]
     Active Substance: TACROLIMUS
     Indication: Prophylaxis against transplant rejection
     Route: 065
  7. BASILIXIMAB [Suspect]
     Active Substance: BASILIXIMAB
     Indication: Prophylaxis against transplant rejection
     Dosage: INDUCTION THERAPY
     Route: 065

REACTIONS (6)
  - Drug resistance [Unknown]
  - Neutropenia [Unknown]
  - Cytomegalovirus gastrointestinal infection [Recovered/Resolved]
  - Acute kidney injury [Recovered/Resolved]
  - Cytomegalovirus infection [Recovered/Resolved]
  - Off label use [Unknown]
